FAERS Safety Report 8091945 (Version 8)
Quarter: 2014Q2

REPORT INFORMATION
  Report Type: Spontaneous
  Country: US (occurrence: US)
  Receive Date: 20110816
  Receipt Date: 20140414
  Transmission Date: 20141212
  Serious: Yes (Hospitalization, Other)
  Sender: FDA-Public Use
  Company Number: US-ROCHE-795933

PATIENT
  Age: 16 Year
  Sex: Male
  Weight: 93.07 kg

DRUGS (4)
  1. ACCUTANE [Suspect]
     Indication: ACNE
     Route: 048
     Dates: start: 19990609, end: 19990830
  2. ACCUTANE [Suspect]
     Route: 048
     Dates: start: 19990830, end: 20001108
  3. TETRACYCLINE [Concomitant]
     Route: 048
     Dates: start: 19990212
  4. IBUPROFEN [Concomitant]

REACTIONS (12)
  - Colitis ulcerative [Unknown]
  - Crohn^s disease [Unknown]
  - Depression [Unknown]
  - Injury [Unknown]
  - Inflammatory bowel disease [Unknown]
  - Anal abscess [Unknown]
  - Dry skin [Unknown]
  - Chapped lips [Unknown]
  - Impetigo [Recovered/Resolved]
  - Irritable bowel syndrome [Unknown]
  - Lip dry [Unknown]
  - Iron deficiency anaemia [Unknown]
